FAERS Safety Report 7134895-8 (Version None)
Quarter: 2010Q4

REPORT INFORMATION
  Report Type: 
  Country: None (occurrence: None)
  Receive Date: 20101203
  Receipt Date: 20101124
  Transmission Date: 20110411
  Serious: Yes (Other)
  Sender: FDA-Public Use
  Company Number: JP-BRACCO-003897

PATIENT
  Age: 57 Year
  Sex: Female

DRUGS (2)
  1. PROHANCE [Suspect]
     Indication: LIVER SCAN
     Route: 042
     Dates: start: 20100826, end: 20100826
  2. PROHANCE [Suspect]
     Indication: HAEMANGIOMA
     Route: 042
     Dates: start: 20100826, end: 20100826

REACTIONS (4)
  - ANAEMIA [None]
  - BLOOD PRESSURE DECREASED [None]
  - COLD SWEAT [None]
  - HYPERVENTILATION [None]
